FAERS Safety Report 5289123-5 (Version None)
Quarter: 2007Q1

REPORT INFORMATION
  Report Type: 
  Country: None (occurrence: None)
  Receive Date: 20070124
  Receipt Date: 20061115
  Transmission Date: 20070707
  Serious: Yes (Hospitalization)
  Sender: FDA-Public Use
  Company Number: US200611003154

PATIENT
  Age: 60 Year
  Sex: Female

DRUGS (14)
  1. FORTEO [Suspect]
     Indication: OSTEOPOROSIS
     Dates: start: 20060214
  2. FORTEO [Concomitant]
  3. CALAN [Concomitant]
  4. ZESTRIL [Concomitant]
  5. PLAVIX [Concomitant]
  6. NEXIUM [Concomitant]
  7. CALCIUM (CALCIUM) [Concomitant]
  8. VITAMINS [Concomitant]
  9. SINGULAIR [Concomitant]
  10. ALLEGRA [Concomitant]
  11. ADVAIR (FLUTICASONE PROPIONATE, SALMETEREOL XINAFOATE) [Concomitant]
  12. ALBUTEROL [Concomitant]
  13. CRESTOR [Concomitant]
  14. ATARAX [Concomitant]

REACTIONS (2)
  - PAIN [None]
  - PNEUMONIA [None]
